FAERS Safety Report 5154007-X (Version None)
Quarter: 2006Q4

REPORT INFORMATION
  Report Type: 
  Country: None (occurrence: None)
  Receive Date: 20061120
  Receipt Date: 20061011
  Transmission Date: 20070319
  Serious: Yes (Hospitalization)
  Sender: FDA-Public Use
  Company Number: 465542

PATIENT
  Age: 82 Year
  Sex: Female

DRUGS (4)
  1. CARVEDILOL [Suspect]
     Indication: CARDIAC FAILURE CHRONIC
     Dosage: 2.5MG TWICE PER DAY
     Route: 048
     Dates: start: 20040127, end: 20050203
  2. ASPIRIN [Suspect]
  3. RENIVACE [Concomitant]
  4. SIGMART [Concomitant]

REACTIONS (1)
  - VENTRICULAR TACHYCARDIA [None]
